FAERS Safety Report 6203728-6 (Version None)
Quarter: 2009Q2

REPORT INFORMATION
  Report Type: 
  Country: None (occurrence: None)
  Receive Date: 20090527
  Receipt Date: 20090517
  Transmission Date: 20091009
  Serious: Yes (Hospitalization)
  Sender: FDA-Public Use
  Company Number: IR-ABBOTT-09P-080-0574081-00

PATIENT
  Age: 51 Year
  Sex: Male

DRUGS (13)
  1. CYCLOSPORINE [Suspect]
     Indication: IMMUNOSUPPRESSION
  2. CYCLOSPORINE [Suspect]
     Dosage: NOT REPORTED
  3. CYCLOSPORINE [Suspect]
  4. CYCLOSPORINE [Suspect]
  5. CYCLOSPORINE [Suspect]
  6. MYCOPHENOLATE MOFETIL [Suspect]
     Indication: IMMUNOSUPPRESSION
  7. MYCOPHENOLATE MOFETIL [Suspect]
  8. PREDNISOLONE [Suspect]
     Indication: IMMUNOSUPPRESSION
  9. PREDNISOLONE [Suspect]
  10. PREDNISOLONE [Suspect]
  11. GANCICLOVIR [Concomitant]
     Indication: CYTOMEGALOVIRUS INFECTION
  12. EXOGENOUS INSULIN [Concomitant]
     Indication: HYPERGLYCAEMIA
     Dosage: NOT REPORTED
  13. AZATHIOPRINE [Concomitant]
     Indication: IMMUNOSUPPRESSION

REACTIONS (2)
  - MUCORMYCOSIS [None]
  - NEPHROPATHY TOXIC [None]
